FAERS Safety Report 9012747 (Version 2)
Quarter: 2013Q1

REPORT INFORMATION
  Report Type: Spontaneous
  Country: US (occurrence: US)
  Receive Date: 20130114
  Receipt Date: 20130328
  Transmission Date: 20140127
  Serious: Yes (Hospitalization)
  Sender: FDA-Public Use
  Company Number: US-ENDO PHARMACEUTICALS INC.-HCDA20130011

PATIENT
  Age: 43 None
  Sex: Male
  Weight: 117.13 kg

DRUGS (12)
  1. HYDROCODONE/ACETAMINOPHEN 10MG/500MG [Suspect]
     Indication: EPICONDYLITIS
     Dosage: 20/1000 MG
     Route: 048
     Dates: start: 20111117
  2. HYDROCODONE/ACETAMINOPHEN 10MG/500MG [Suspect]
     Dosage: 10/500 MG
     Route: 048
  3. LOSARTAN POTASSIUM TABLETS 50MG [Concomitant]
     Indication: ESSENTIAL HYPERTENSION
     Route: 048
     Dates: start: 20110914
  4. SIMVASTATIN [Concomitant]
     Indication: HYPERLIPIDAEMIA
     Route: 048
     Dates: start: 20110516, end: 20121227
  5. ASPIRIN [Concomitant]
     Indication: TRANSIENT ISCHAEMIC ATTACK
     Route: 048
     Dates: start: 20110527
  6. MELOXICAM [Concomitant]
     Indication: EPICONDYLITIS
     Route: 048
     Dates: start: 20111117
  7. FLEXERIL [Concomitant]
     Indication: EPICONDYLITIS
     Route: 048
     Dates: start: 20111117
  8. TRAMADOL [Concomitant]
     Indication: NECK PAIN
     Route: 048
     Dates: start: 20110914
  9. BUSPIRONE [Concomitant]
     Indication: ANXIETY
     Route: 048
     Dates: start: 20110914
  10. CORTISPORIN [Concomitant]
     Route: 001
     Dates: start: 20111227
  11. CEFDINIR [Concomitant]
     Route: 048
     Dates: start: 20111227
  12. CITALOPRAM HYDROBROMIDE [Concomitant]
     Route: 048
     Dates: start: 20120518

REACTIONS (2)
  - Coronary artery disease [Not Recovered/Not Resolved]
  - Abdominal pain upper [Unknown]
